FAERS Safety Report 8739702 (Version 2)
Quarter: 2013Q1

REPORT INFORMATION
  Report Type: Report from Study
  Country: JP (occurrence: JP)
  Receive Date: 20120823
  Receipt Date: 20130108
  Transmission Date: 20140127
  Serious: Yes (Hospitalization, Other)
  Sender: FDA-Public Use
  Company Number: JP-ROCHE-1104460

PATIENT
  Age: 63 Year
  Sex: Male
  Weight: 80 kg

DRUGS (6)
  1. ALTEPLASE [Suspect]
     Indication: EMBOLIC STROKE
     Route: 040
     Dates: start: 20110603
  2. EDARAVONE [Suspect]
     Indication: EMBOLIC STROKE
     Route: 041
     Dates: start: 20110603, end: 20110615
  3. HEPARIN SODIUM [Suspect]
     Indication: EMBOLIC STROKE
     Dosage: 12 KIU/DAY
     Route: 041
     Dates: start: 20110604, end: 20110613
  4. WARFARIN POTASSIUM [Concomitant]
     Route: 048
     Dates: start: 20110608
  5. HALFDIGOXIN KY [Concomitant]
     Route: 048
     Dates: start: 20110608
  6. FAMOTIDINE [Concomitant]
     Route: 048
     Dates: start: 20110609

REACTIONS (2)
  - Haemorrhagic cerebral infarction [Recovered/Resolved]
  - Embolic stroke [Recovering/Resolving]
